FAERS Safety Report 25804498 (Version 2)
Quarter: 2025Q3

REPORT INFORMATION
  Report Type: Spontaneous
  Country: GB (occurrence: GB)
  Receive Date: 20250915
  Receipt Date: 20250919
  Transmission Date: 20251021
  Serious: Yes (Other)
  Sender: BAUSCH AND LOMB
  Company Number: GB-BAUSCH-BH-2025-017403

PATIENT
  Sex: Female

DRUGS (5)
  1. AZATHIOPRINE [Suspect]
     Active Substance: AZATHIOPRINE
     Indication: Systemic lupus erythematosus
     Route: 065
     Dates: start: 2010, end: 2020
  2. AZATHIOPRINE [Suspect]
     Active Substance: AZATHIOPRINE
     Route: 065
     Dates: start: 2020, end: 2020
  3. PREDNISOLONE [Concomitant]
     Active Substance: PREDNISOLONE
     Indication: Systemic lupus erythematosus
     Dates: start: 2020
  4. HYDROXYCHLOROQUINE [Concomitant]
     Active Substance: HYDROXYCHLOROQUINE
     Indication: Systemic lupus erythematosus
     Dates: start: 2020
  5. HYDROXYCHLOROQUINE [Concomitant]
     Active Substance: HYDROXYCHLOROQUINE
     Dates: start: 2009

REACTIONS (3)
  - Non-cirrhotic portal hypertension [Unknown]
  - Hypersplenism [Unknown]
  - Thrombocytopenia [Recovering/Resolving]

NARRATIVE: CASE EVENT DATE: 20200101
